FAERS Safety Report 11079445 (Version 1)
Quarter: 2015Q2

REPORT INFORMATION
  Report Type: Spontaneous
  Country: FR (occurrence: FR)
  Receive Date: 20150430
  Receipt Date: 20150430
  Transmission Date: 20150821
  Serious: Yes (Other)
  Sender: FDA-Public Use
  Company Number: FR-009507513-1409FRA007237

PATIENT
  Age: 33 Year
  Sex: Female
  Weight: 82 kg

DRUGS (6)
  1. NEO-MERCAZOLE [Concomitant]
     Active Substance: CARBIMAZOLE
     Indication: GOITRE
     Dosage: UNK
     Route: 048
  2. GAVISCON (ALGINIC ACID (+) ALUMINUM HYDROXIDE (+) MAGNESIUM TRISILICAT [Concomitant]
     Active Substance: ALGINIC ACID\ALUMINUM HYDROXIDE\MAGNESIUM TRISILICATE
     Indication: PREGNANCY
  3. NEXPLANON [Suspect]
     Active Substance: ETONOGESTREL
     Indication: CONTRACEPTION
     Dosage: UNK
     Route: 059
     Dates: start: 201303
  4. MAGNE B6 [Concomitant]
     Active Substance: MAGNESIUM\PYRIDOXINE
     Indication: PREGNANCY
     Dosage: 1 DF, QD
     Route: 048
     Dates: start: 201411, end: 201503
  5. GAVISCON (ALGINIC ACID (+) ALUMINUM HYDROXIDE (+) MAGNESIUM TRISILICAT [Concomitant]
     Active Substance: ALGINIC ACID\ALUMINUM HYDROXIDE\MAGNESIUM TRISILICATE
     Indication: DYSPEPSIA
     Dosage: UNK, PM
     Route: 048
     Dates: start: 201411, end: 201503
  6. PROPYLTHIOURACIL. [Concomitant]
     Active Substance: PROPYLTHIOURACIL
     Dosage: 50 MG NOS

REACTIONS (3)
  - Premature delivery [Recovered/Resolved]
  - Pregnancy with implant contraceptive [Recovered/Resolved]
  - Caesarean section [Recovered/Resolved]

NARRATIVE: CASE EVENT DATE: 20141221
